FAERS Safety Report 23692030 (Version 1)
Quarter: 2024Q1

REPORT INFORMATION
  Report Type: Spontaneous
  Country: US (occurrence: None)
  Receive Date: 20240329
  Receipt Date: 20240329
  Transmission Date: 20240409
  Serious: No
  Sender: FDA-Public Use
  Company Number: None

PATIENT
  Sex: 0

DRUGS (1)
  1. LUBIPROSTONE [Suspect]
     Active Substance: LUBIPROSTONE

REACTIONS (4)
  - Vomiting [None]
  - Diarrhoea [None]
  - Dizziness [None]
  - Fatigue [None]
